FAERS Safety Report 6608371-2 (Version None)
Quarter: 2010Q1

REPORT INFORMATION
  Report Type: 
  Country: None (occurrence: None)
  Receive Date: 20100301
  Receipt Date: 20100217
  Transmission Date: 20100710
  Serious: Yes (Death)
  Sender: FDA-Public Use
  Company Number: IT-PFIZER INC-2009312986

PATIENT
  Age: 61 Year
  Sex: Male

DRUGS (4)
  1. FARMORUBICINA [Suspect]
     Indication: LYMPHOMA
     Dosage: 92 MG, CYCLIC
     Route: 042
     Dates: start: 20091017, end: 20091116
  2. IFOSFAMIDE [Suspect]
     Indication: LYMPHOMA
     Dosage: 5000 MG, CYCLIC
     Route: 042
     Dates: start: 20091017, end: 20091116
  3. ETOPOSIDE [Suspect]
     Indication: LYMPHOMA
     Dosage: 200 MG, CYCLIC
     Route: 042
     Dates: start: 20091017, end: 20091116
  4. ALLOPURINOL [Concomitant]
     Dosage: 300 MG
     Route: 048
     Dates: start: 20091112, end: 20091121

REACTIONS (1)
  - RENAL FAILURE ACUTE [None]
